FAERS Safety Report 8297863-9 (Version None)
Quarter: 2012Q2

REPORT INFORMATION
  Report Type: 
  Country: None (occurrence: None)
  Receive Date: 20120419
  Receipt Date: 20120410
  Transmission Date: 20120825
  Serious: Yes (Hospitalization)
  Sender: FDA-Public Use
  Company Number: PHHY2012CA023647

PATIENT
  Sex: Male

DRUGS (3)
  1. ASPIRIN [Concomitant]
     Dosage: 81 MG, DAILY
     Route: 048
  2. COUMADIN [Concomitant]
  3. EXJADE [Suspect]
     Indication: MYELOFIBROSIS
     Dosage: 2000 MG, UNK
     Route: 048
     Dates: start: 20101201, end: 20120101

REACTIONS (5)
  - HAEMATEMESIS [None]
  - INTERNATIONAL NORMALISED RATIO INCREASED [None]
  - OESOPHAGEAL ULCER [None]
  - HAEMOGLOBIN DECREASED [None]
  - HAEMORRHAGE [None]
